FAERS Safety Report 6360639-3 (Version None)
Quarter: 2009Q3

REPORT INFORMATION
  Report Type: 
  Country: None (occurrence: None)
  Receive Date: 20090915
  Receipt Date: 20090831
  Transmission Date: 20100115
  Serious: Yes (Other)
  Sender: FDA-Public Use
  Company Number: 2009002642

PATIENT
  Age: 74 Year
  Sex: Male
  Weight: 96.6162 kg

DRUGS (17)
  1. ERLOTINIB HYDROCHLORIDE [Suspect]
     Indication: NON-SMALL CELL LUNG CANCER
     Dosage: (150 MG, QD), ORAL
     Route: 048
     Dates: start: 20090701, end: 20090810
  2. ALTACE [Concomitant]
  3. COUMADIN [Concomitant]
  4. MINOCYCLINE HCL [Concomitant]
  5. COREG [Concomitant]
  6. FLOMAX (MORNIFLUMATE) [Concomitant]
  7. GLYBURIDE [Concomitant]
  8. HYDROCODONE (HYDROCODONE) [Concomitant]
  9. KLOR-CON [Concomitant]
  10. LANTUS [Concomitant]
  11. LASIX [Concomitant]
  12. LIPITOR [Concomitant]
  13. NEURONTIN [Concomitant]
  14. PERFOROMIST [Concomitant]
  15. PROTONIX [Concomitant]
  16. CENTRUM SILVER (CENTRUM SILVER) [Concomitant]
  17. CLINDAMYCIN HCL [Concomitant]

REACTIONS (1)
  - WOUND DEHISCENCE [None]
